FAERS Safety Report 7463686-3 (Version None)
Quarter: 2011Q2

REPORT INFORMATION
  Report Type: 
  Country: None (occurrence: None)
  Receive Date: 20110506
  Receipt Date: 20110427
  Transmission Date: 20111010
  Serious: Yes (Other)
  Sender: FDA-Public Use
  Company Number: US-ROCHE-743187

PATIENT
  Sex: Male
  Weight: 68 kg

DRUGS (2)
  1. ACCUTANE [Suspect]
     Indication: ACNE
     Route: 065
     Dates: start: 19901201, end: 19910901
  2. ACCUTANE [Suspect]
     Route: 065
     Dates: start: 19910101, end: 19910301

REACTIONS (8)
  - INFLAMMATORY BOWEL DISEASE [None]
  - DEPRESSION [None]
  - INTESTINAL OBSTRUCTION [None]
  - DRUG DEPENDENCE [None]
  - ANAL FISTULA [None]
  - CROHN'S DISEASE [None]
  - ENTEROVESICAL FISTULA [None]
  - GASTROINTESTINAL INJURY [None]
